FAERS Safety Report 8296458-0 (Version None)
Quarter: 2012Q2

REPORT INFORMATION
  Report Type: 
  Country: None (occurrence: None)
  Receive Date: 20120418
  Receipt Date: 20120406
  Transmission Date: 20120825
  Serious: Yes (Other)
  Sender: FDA-Public Use
  Company Number: JP-PFIZER INC-2012046853

PATIENT
  Age: 77 Year
  Sex: Male

DRUGS (5)
  1. MYONAL [Concomitant]
     Indication: SPINAL OSTEOARTHRITIS
     Dosage: UNK
     Route: 048
     Dates: start: 20120213, end: 20120213
  2. CELEBREX [Suspect]
     Indication: SPINAL OSTEOARTHRITIS
     Dosage: 100 MG,UID/QD
     Route: 048
     Dates: start: 20110801
  3. CELEBREX [Suspect]
     Dosage: 100 MG, 2X/DAY
     Route: 048
     Dates: start: 20120213, end: 20120213
  4. KETOPROFEN [Concomitant]
     Indication: SPINAL OSTEOARTHRITIS
     Dosage: UNK
     Dates: start: 20120213, end: 20120213
  5. REBAMIPIDE [Concomitant]
     Indication: PROPHYLAXIS
     Dosage: UNK
     Dates: start: 20120213, end: 20120213

REACTIONS (3)
  - GENERALISED ERYTHEMA [None]
  - INTENTIONAL DRUG MISUSE [None]
  - DERMATITIS BULLOUS [None]
